FAERS Safety Report 21862927 (Version 1)
Quarter: 2023Q1

REPORT INFORMATION
  Report Type: Spontaneous
  Country: TW (occurrence: TW)
  Receive Date: 20230114
  Receipt Date: 20230114
  Transmission Date: 20230418
  Serious: Yes (Other)
  Sender: FDA-Public Use
  Company Number: TW-009507513-2301TWN002229

PATIENT
  Age: 72 Year
  Sex: Female

DRUGS (18)
  1. KEYTRUDA [Suspect]
     Active Substance: PEMBROLIZUMAB
     Indication: Oesophageal squamous cell carcinoma stage IV
     Dosage: 200 MG, Q3W, DAY (D)1
     Dates: start: 20211008, end: 20220225
  2. KEYTRUDA [Suspect]
     Active Substance: PEMBROLIZUMAB
     Indication: Lip and/or oral cavity cancer stage IV
     Dosage: 1 DOSAGE FORM
     Dates: start: 20220902
  3. KEYTRUDA [Suspect]
     Active Substance: PEMBROLIZUMAB
     Dosage: UNK
     Dates: start: 202210
  4. PACLITAXEL [Suspect]
     Active Substance: PACLITAXEL
     Indication: Lip and/or oral cavity cancer stage IV
     Dosage: 90MG (60MG/M2), Q3W, D1, D8
     Dates: start: 20211008, end: 20220225
  5. PACLITAXEL [Suspect]
     Active Substance: PACLITAXEL
     Indication: Oesophageal squamous cell carcinoma stage IV
     Dosage: 1 DOSAGE FORM
     Dates: start: 20220902
  6. PACLITAXEL [Suspect]
     Active Substance: PACLITAXEL
     Dosage: UNK
     Dates: start: 202210
  7. LEUCOVORIN [Suspect]
     Active Substance: LEUCOVORIN
     Indication: Lip and/or oral cavity cancer stage IV
     Dosage: 250MG (150MG/M2), Q3W, D1, D8
     Dates: start: 20211008, end: 20220225
  8. LEUCOVORIN [Suspect]
     Active Substance: LEUCOVORIN
     Indication: Oesophageal squamous cell carcinoma stage IV
     Dosage: 1 DOSAGE FORM
     Dates: start: 20220902
  9. LEUCOVORIN [Suspect]
     Active Substance: LEUCOVORIN
     Dosage: UNK
     Dates: start: 202210
  10. CISPLATIN [Suspect]
     Active Substance: CISPLATIN
     Indication: Lip and/or oral cavity cancer stage IV
     Dosage: 50MG (30MG/M2/24HR), Q3W, D1, D8
     Dates: start: 20211008, end: 20220225
  11. CISPLATIN [Suspect]
     Active Substance: CISPLATIN
     Indication: Oesophageal squamous cell carcinoma stage IV
     Dosage: 1 DOSAGE FORM
     Dates: start: 20220902
  12. CISPLATIN [Suspect]
     Active Substance: CISPLATIN
     Dosage: UNK
     Dates: start: 202210
  13. FLUOROURACIL [Suspect]
     Active Substance: FLUOROURACIL
     Indication: Lip and/or oral cavity cancer stage IV
     Dosage: 2400MG (1500MG/M2/24HR), Q3W, D1, D8
     Dates: start: 20211008, end: 20220225
  14. FLUOROURACIL [Suspect]
     Active Substance: FLUOROURACIL
     Indication: Oesophageal squamous cell carcinoma stage IV
     Dosage: 1 DOSAGE FORM
     Dates: start: 20220902
  15. FLUOROURACIL [Suspect]
     Active Substance: FLUOROURACIL
     Dosage: UNK
     Dates: start: 202210
  16. GRANULOCYTE COLONY-STIMULATING FACTOR NOS [Concomitant]
     Active Substance: GRANULOCYTE COLONY-STIMULATING FACTOR NOS
     Dosage: 300 MICROGRAM
     Dates: start: 20211013
  17. GRANULOCYTE COLONY-STIMULATING FACTOR NOS [Concomitant]
     Active Substance: GRANULOCYTE COLONY-STIMULATING FACTOR NOS
     Dosage: 300 MICROGRAM
     Dates: start: 20211019
  18. GRANULOCYTE COLONY-STIMULATING FACTOR NOS [Concomitant]
     Active Substance: GRANULOCYTE COLONY-STIMULATING FACTOR NOS
     Dosage: 300 MICROGRAM
     Dates: start: 20211020

REACTIONS (18)
  - Gastrointestinal stenosis [Unknown]
  - Gastrostomy [Unknown]
  - Mucosal inflammation [Unknown]
  - Neutropenia [Unknown]
  - Malignant neoplasm progression [Unknown]
  - Thrombocytopenia [Unknown]
  - COVID-19 [Unknown]
  - Weight abnormal [Unknown]
  - Dysphagia [Unknown]
  - Lymphadenitis [Unknown]
  - Parenteral nutrition [Unknown]
  - Rehabilitation therapy [Unknown]
  - Mucosal disorder [Unknown]
  - Dyspepsia [Recovered/Resolved]
  - Gastrointestinal ulcer [Unknown]
  - Anaemia [Unknown]
  - Vomiting [Unknown]
  - Product use issue [Unknown]

NARRATIVE: CASE EVENT DATE: 20210101
